FAERS Safety Report 7557035-X (Version None)
Quarter: 2011Q2

REPORT INFORMATION
  Report Type: 
  Country: None (occurrence: None)
  Receive Date: 20110616
  Receipt Date: 20110616
  Transmission Date: 20111010
  Serious: No
  Sender: FDA-Public Use
  Company Number: None

PATIENT

DRUGS (1)
  1. AVONEX [Suspect]
     Indication: MULTIPLE SCLEROSIS
     Dosage: 30 MCG ONCE WEEKLY IM
     Route: 030
     Dates: start: 20100218, end: 20110324

REACTIONS (1)
  - CONVERSION DISORDER [None]
